FAERS Safety Report 8132908-8 (Version None)
Quarter: 2012Q1

REPORT INFORMATION
  Report Type: 
  Country: None (occurrence: None)
  Receive Date: 20120207
  Receipt Date: 20120124
  Transmission Date: 20120608
  Serious: Yes (Death)
  Sender: FDA-Public Use
  Company Number: NGX_00839_2012

PATIENT
  Sex: Male
  Weight: 57 kg

DRUGS (3)
  1. QUTENZA [Suspect]
     Indication: NEUROPATHY PERIPHERAL
     Dosage: (4 DF, [PATCH, APPLIED TO THE FOOT] TOPICAL)
     Route: 061
     Dates: start: 20110815, end: 20110815
  2. GABAPENTIN [Concomitant]
  3. EMLA [Concomitant]

REACTIONS (5)
  - NEURALGIA [None]
  - MYALGIA [None]
  - PARAESTHESIA [None]
  - PROGRESSIVE MULTIFOCAL LEUKOENCEPHALOPATHY [None]
  - HIV INFECTION [None]
